FAERS Safety Report 14284865 (Version 2)
Quarter: 2017Q4

REPORT INFORMATION
  Report Type: Report from Study
  Country: US (occurrence: US)
  Receive Date: 20171214
  Receipt Date: 20171228
  Transmission Date: 20180321
  Serious: Yes (Death, Life-Threatening, Hospitalization, Other)
  Sender: FDA-Public Use
  Company Number: US-BRISTOL-MYERS SQUIBB COMPANY-BMS-2017-113505

PATIENT
  Age: 73 Year
  Sex: Female
  Weight: 54.9 kg

DRUGS (2)
  1. IPILIMUMAB [Suspect]
     Active Substance: IPILIMUMAB
     Indication: PANCREATIC CARCINOMA
     Dosage: 58 MG, Q6WK
     Route: 042
     Dates: start: 20170821
  2. NIVOLUMAB [Suspect]
     Active Substance: NIVOLUMAB
     Indication: PANCREATIC CARCINOMA
     Dosage: 240 MG, Q2WK
     Route: 042
     Dates: start: 20170821

REACTIONS (6)
  - Respiratory failure [Fatal]
  - Fatigue [Unknown]
  - Hepatic encephalopathy [Fatal]
  - Decreased appetite [Unknown]
  - Mental status changes [Unknown]
  - Vomiting [Unknown]

NARRATIVE: CASE EVENT DATE: 20171202
